FAERS Safety Report 21875408 (Version 7)
Quarter: 2023Q2

REPORT INFORMATION
  Report Type: Spontaneous
  Country: JP (occurrence: JP)
  Receive Date: 20230118
  Receipt Date: 20230613
  Transmission Date: 20230722
  Serious: Yes (Hospitalization, Disabling, Other)
  Sender: FDA-Public Use
  Company Number: JP-BRISTOL-MYERS SQUIBB COMPANY-2023-004324

PATIENT
  Age: 87 Year
  Sex: Male
  Weight: 65 kg

DRUGS (14)
  1. YERVOY [Suspect]
     Active Substance: IPILIMUMAB
     Indication: Non-small cell lung cancer
     Route: 041
     Dates: start: 20221214
  2. OPDIVO [Suspect]
     Active Substance: NIVOLUMAB
     Indication: Non-small cell lung cancer
     Route: 041
     Dates: start: 20221214
  3. OPDIVO [Suspect]
     Active Substance: NIVOLUMAB
     Route: 041
     Dates: start: 20221228
  4. AMLODIPINE [Concomitant]
     Active Substance: AMLODIPINE BESYLATE
     Indication: Non-small cell lung cancer
     Route: 048
  5. TELMISARTAN [Concomitant]
     Active Substance: TELMISARTAN
     Indication: Non-small cell lung cancer
     Route: 048
  6. IFENPRODIL [Concomitant]
     Active Substance: IFENPRODIL
     Indication: Non-small cell lung cancer
     Route: 048
  7. BENFOTIAMINE [Concomitant]
     Active Substance: BENFOTIAMINE
     Indication: Non-small cell lung cancer
     Dosage: 1?1???????2??
     Route: 048
  8. ADENOSINE TRIPHOSPHATE DISODIUM [Concomitant]
     Active Substance: ADENOSINE TRIPHOSPHATE DISODIUM
     Indication: Non-small cell lung cancer
     Route: 048
  9. L-ISOLEUCINE [Concomitant]
     Indication: Non-small cell lung cancer
     Route: 048
  10. ASPIRIN [Concomitant]
     Active Substance: ASPIRIN
     Indication: Non-small cell lung cancer
     Route: 048
  11. ICOSAPENT ETHYL [Concomitant]
     Active Substance: ICOSAPENT ETHYL
     Indication: Non-small cell lung cancer
     Route: 048
  12. DEXTROMETHORPHAN HYDROBROMIDE [Concomitant]
     Active Substance: DEXTROMETHORPHAN HYDROBROMIDE
     Indication: Non-small cell lung cancer
     Route: 048
  13. MAGNESIUM OXIDE [Concomitant]
     Active Substance: MAGNESIUM OXIDE
     Indication: Non-small cell lung cancer
     Route: 048
  14. URSODIOL [Concomitant]
     Active Substance: URSODIOL
     Indication: Non-small cell lung cancer
     Route: 048

REACTIONS (4)
  - Hypoglycaemia [Recovering/Resolving]
  - Altered state of consciousness [Unknown]
  - Adrenal insufficiency [Recovering/Resolving]
  - Hypothyroidism [Recovering/Resolving]

NARRATIVE: CASE EVENT DATE: 20230105
